FAERS Safety Report 19004649 (Version 1)
Quarter: 2021Q1

REPORT INFORMATION
  Report Type: Spontaneous
  Country: US (occurrence: US)
  Receive Date: 20210312
  Receipt Date: 20210312
  Transmission Date: 20210420
  Serious: No
  Sender: FDA-Public Use
  Company Number: US-TAKEDA-2021TUS015215

PATIENT
  Sex: Male
  Weight: 91 kg

DRUGS (28)
  1. ACETAMINOPHEN. [Concomitant]
     Active Substance: ACETAMINOPHEN
  2. DIPHENHYDRAMINE. [Concomitant]
     Active Substance: DIPHENHYDRAMINE
  3. EPINEPHRINE. [Concomitant]
     Active Substance: EPINEPHRINE
  4. AMLODIPINE [Concomitant]
     Active Substance: AMLODIPINE BESYLATE
  5. BUPROPION. [Concomitant]
     Active Substance: BUPROPION
  6. FAMOTIDINE. [Concomitant]
     Active Substance: FAMOTIDINE
  7. LORAZEPAM. [Concomitant]
     Active Substance: LORAZEPAM
  8. NAPROXEN. [Concomitant]
     Active Substance: NAPROXEN
  9. LIDOCAINE. [Concomitant]
     Active Substance: LIDOCAINE
  10. CLOBETASOL [Concomitant]
     Active Substance: CLOBETASOL
  11. CUVITRU [Suspect]
     Active Substance: HUMAN IMMUNOGLOBULIN G
     Indication: CONGENITAL HYPOGAMMAGLOBULINAEMIA
     Dosage: 12 GRAM, 1/WEEK
     Route: 058
     Dates: start: 20210218
  12. SINGULAIR [Concomitant]
     Active Substance: MONTELUKAST SODIUM
  13. VITAMIN A [RETINOL] [Concomitant]
     Active Substance: RETINOL
  14. GABAPENTIN. [Concomitant]
     Active Substance: GABAPENTIN
  15. PRAVASTATIN. [Concomitant]
     Active Substance: PRAVASTATIN
  16. ZINC. [Concomitant]
     Active Substance: ZINC
  17. LEVOTHYROXINE. [Concomitant]
     Active Substance: LEVOTHYROXINE
  18. MELATONIN [Concomitant]
     Active Substance: MELATONIN
  19. TESTOSTERONE. [Concomitant]
     Active Substance: TESTOSTERONE
  20. ALLOPURINOL. [Concomitant]
     Active Substance: ALLOPURINOL
  21. ELDERBERRY [SAMBUCUS NIGRA] [Concomitant]
  22. ALBUTEROL [SALBUTAMOL] [Concomitant]
     Active Substance: ALBUTEROL
  23. FLUOXETINE [Concomitant]
     Active Substance: FLUOXETINE HYDROCHLORIDE
  24. FLONASE [MOMETASONE FUROATE] [Concomitant]
     Active Substance: MOMETASONE FUROATE
  25. VITAMIN B12 [Concomitant]
     Active Substance: CYANOCOBALAMIN
  26. METOPROLOL. [Concomitant]
     Active Substance: METOPROLOL
  27. VITAMIN D3 [Concomitant]
     Active Substance: CHOLECALCIFEROL
  28. DEXILANT [Concomitant]
     Active Substance: DEXLANSOPRAZOLE

REACTIONS (2)
  - Fatigue [Unknown]
  - Infusion site bruising [Unknown]
